FAERS Safety Report 6134273-4 (Version None)
Quarter: 2009Q1

REPORT INFORMATION
  Report Type: 
  Country: None (occurrence: None)
  Receive Date: 20090325
  Receipt Date: 20090310
  Transmission Date: 20090719
  Serious: Yes (Hospitalization)
  Sender: FDA-Public Use
  Company Number: 2009S1004729

PATIENT
  Age: 86 Year
  Sex: Female
  Weight: 58 kg

DRUGS (6)
  1. OMEPRAZOLE [Suspect]
     Indication: PROPHYLAXIS AGAINST GASTROINTESTINAL ULCER
     Dosage: 40 MG;ORAL
     Route: 048
     Dates: start: 20070701
  2. TAZOBAC (PIP/TAZO) [Suspect]
     Indication: INFECTION PROPHYLAXIS
     Dosage: 4.5 MG;INTRAVENOUS
     Route: 042
     Dates: start: 20081219, end: 20081231
  3. FERRO /00023502/ (FERROUS GLUCONATE) [Suspect]
     Indication: ANAEMIA POSTOPERATIVE
     Dosage: 40 MG;ORAL
     Route: 048
     Dates: start: 20081222, end: 20090202
  4. CLEXANE [Concomitant]
  5. ARCOXIA [Concomitant]
  6. RISPERDAL [Concomitant]

REACTIONS (3)
  - CARDIOVASCULAR INSUFFICIENCY [None]
  - CLOSTRIDIUM DIFFICILE COLITIS [None]
  - PYREXIA [None]
